FAERS Safety Report 9778355 (Version 2)
Quarter: 2013Q4

REPORT INFORMATION
  Report Type: Spontaneous
  Country: IT (occurrence: IT)
  Receive Date: 20131223
  Receipt Date: 20131223
  Transmission Date: 20140711
  Serious: Yes (Other)
  Sender: FDA-Public Use
  Company Number: IT-BAYER-2013-143485

PATIENT
  Age: 32 Year
  Sex: Female
  Weight: 60 kg

DRUGS (1)
  1. CIPROXIN [Suspect]
     Dosage: 500 MG, BID
     Route: 048
     Dates: start: 20130925, end: 20130929

REACTIONS (2)
  - Exposure during pregnancy [None]
  - Abortion spontaneous [None]
